FAERS Safety Report 17423476 (Version 1)
Quarter: 2020Q1

REPORT INFORMATION
  Report Type: Spontaneous
  Country: US (occurrence: US)
  Receive Date: 20200131
  Receipt Date: 20200131
  Transmission Date: 20200409
  Serious: No
  Sender: FDA-Public Use
  Company Number: None

PATIENT
  Age: 81 Year
  Sex: Female

DRUGS (2)
  1. ROPIVACAINE HYDROCHLORIDE. [Suspect]
     Active Substance: ROPIVACAINE HYDROCHLORIDE
  2. ON-Q PUMP [Suspect]
     Active Substance: DEVICE

REACTIONS (5)
  - Loss of proprioception [None]
  - Device malfunction [None]
  - Hypoaesthesia [None]
  - Extra dose administered [None]
  - Movement disorder [None]
